FAERS Safety Report 15612584 (Version 1)
Quarter: 2018Q4

REPORT INFORMATION
  Report Type: Spontaneous
  Country: TN (occurrence: TN)
  Receive Date: 20181113
  Receipt Date: 20181113
  Transmission Date: 20190205
  Serious: Yes (Other)
  Sender: FDA-Public Use
  Company Number: TN-ALEMBIC PHARMACUETICALS LIMITED-2018SCAL000830

PATIENT

DRUGS (1)
  1. DOXYCYCLINE. [Suspect]
     Active Substance: DOXYCYCLINE
     Indication: GENITAL INFECTION
     Dosage: 200 MG

REACTIONS (3)
  - Dermatitis bullous [Recovering/Resolving]
  - Rash erythematous [Recovering/Resolving]
  - Fixed eruption [Recovering/Resolving]
